FAERS Safety Report 6551061-5 (Version None)
Quarter: 2010Q1

REPORT INFORMATION
  Report Type: 
  Country: None (occurrence: None)
  Receive Date: 20100122
  Receipt Date: 20100122
  Transmission Date: 20100710
  Serious: Yes (Life-Threatening)
  Sender: FDA-Public Use
  Company Number: None

PATIENT
  Age: 30 Year
  Sex: Female
  Weight: 99.3377 kg

DRUGS (1)
  1. ALPRAZOLAM [Suspect]
     Indication: ANXIETY
     Dosage: 1 TAB BID PO
     Route: 048
     Dates: start: 20091218, end: 20091219

REACTIONS (2)
  - FEELING OF DESPAIR [None]
  - OVERDOSE [None]
